FAERS Safety Report 7438942-5 (Version None)
Quarter: 2011Q2

REPORT INFORMATION
  Report Type: 
  Country: None (occurrence: None)
  Receive Date: 20110426
  Receipt Date: 20110425
  Transmission Date: 20111010
  Serious: Yes (Death, Other)
  Sender: FDA-Public Use
  Company Number: CN-BAYER-2011-035055

PATIENT
  Age: 69 Year
  Sex: Female
  Weight: 120 kg

DRUGS (3)
  1. ULTRAVIST 370 [Suspect]
     Indication: ARTERIOGRAM CORONARY
     Dosage: 20 ML, ONCE
     Dates: start: 20110419, end: 20110419
  2. CLOPIDOGREL [Concomitant]
     Dosage: 75 MG, QD
     Dates: start: 20110401, end: 20110401
  3. ASPIRIN [Concomitant]
     Dosage: 100 MG, QD
     Dates: start: 20110401, end: 20110401

REACTIONS (7)
  - CEREBRAL ISCHAEMIA [None]
  - RESPIRATORY ARREST [None]
  - DYSPNOEA [None]
  - INCREASED UPPER AIRWAY SECRETION [None]
  - LOSS OF CONSCIOUSNESS [None]
  - CYANOSIS [None]
  - LARYNGOSPASM [None]
